FAERS Safety Report 12890549 (Version 2)
Quarter: 2021Q1

REPORT INFORMATION
  Report Type: Spontaneous
  Country: US (occurrence: US)
  Receive Date: 20161027
  Receipt Date: 20210223
  Transmission Date: 20210419
  Serious: No
  Sender: FDA-Public Use
  Company Number: US-JAZZ-2016-US-015652

PATIENT
  Sex: Female
  Weight: 70 kg

DRUGS (34)
  1. XYREM [Suspect]
     Active Substance: SODIUM OXYBATE
     Dosage: 1.5 G, BID
     Route: 048
     Dates: start: 201512, end: 201602
  2. POTASSIUM [Concomitant]
     Active Substance: POTASSIUM
     Indication: SUPPLEMENTATION THERAPY
  3. MAXALT [Concomitant]
     Active Substance: RIZATRIPTAN BENZOATE
     Indication: MIGRAINE
  4. RETIN?A [Concomitant]
     Active Substance: TRETINOIN
  5. POTASSIUM GLUCONATE [Concomitant]
     Active Substance: POTASSIUM GLUCONATE
  6. DOXEPIN [DOXEPIN HYDROCHLORIDE] [Concomitant]
     Active Substance: DOXEPIN HYDROCHLORIDE
     Indication: MIGRAINE
  7. ALEVE [Concomitant]
     Active Substance: NAPROXEN SODIUM
  8. LATISSE [Concomitant]
     Active Substance: BIMATOPROST
  9. MAGNESIUM OXIDE. [Concomitant]
     Active Substance: MAGNESIUM OXIDE
  10. XYREM [Suspect]
     Active Substance: SODIUM OXYBATE
     Indication: NARCOLEPSY
     Dosage: 1.5 G, BID
     Route: 048
     Dates: start: 200808, end: 200809
  11. XYREM [Suspect]
     Active Substance: SODIUM OXYBATE
     Dosage: 4.5 G, BID
     Route: 048
     Dates: start: 201203, end: 2012
  12. MIRENA [Concomitant]
     Active Substance: LEVONORGESTREL
  13. PREDNISONE. [Concomitant]
     Active Substance: PREDNISONE
  14. ZOLPIDEM TARTRATE. [Concomitant]
     Active Substance: ZOLPIDEM TARTRATE
  15. ZOMIG [Concomitant]
     Active Substance: ZOLMITRIPTAN
  16. PROTONIX [Concomitant]
     Active Substance: PANTOPRAZOLE SODIUM
  17. OMEPRAZOLE. [Concomitant]
     Active Substance: OMEPRAZOLE
  18. CLEOCIN [CLINDAMYCIN HYDROCHLORIDE] [Concomitant]
     Active Substance: CLINDAMYCIN HYDROCHLORIDE
  19. VITAMIN C [Concomitant]
     Active Substance: ASCORBIC ACID
  20. CELEXA [Concomitant]
     Active Substance: CITALOPRAM HYDROBROMIDE
  21. CYMBALTA [Concomitant]
     Active Substance: DULOXETINE HYDROCHLORIDE
  22. XYREM [Suspect]
     Active Substance: SODIUM OXYBATE
     Indication: SOMNOLENCE
     Dosage: DOSE ADJUSTMENTS
     Route: 048
     Dates: start: 200809, end: 200906
  23. XYREM [Suspect]
     Active Substance: SODIUM OXYBATE
     Dosage: DOSE ADJUSTMENTS
     Route: 048
     Dates: start: 201602, end: 201605
  24. MAGNESIUM [Concomitant]
     Active Substance: MAGNESIUM
     Indication: SUPPLEMENTATION THERAPY
  25. TYLENOL EXTRA STRENGTH [Concomitant]
     Active Substance: ACETAMINOPHEN
  26. ZOFRAN [Concomitant]
     Active Substance: ONDANSETRON HYDROCHLORIDE
  27. CONCERTA [Concomitant]
     Active Substance: METHYLPHENIDATE HYDROCHLORIDE
  28. ZALEPLON. [Concomitant]
     Active Substance: ZALEPLON
  29. VITAMIN D3 [Concomitant]
     Active Substance: CHOLECALCIFEROL
  30. EFFEXOR [Concomitant]
     Active Substance: VENLAFAXINE HYDROCHLORIDE
  31. XYREM [Suspect]
     Active Substance: SODIUM OXYBATE
     Indication: CATAPLEXY
     Dosage: 4.5 G, BID
     Route: 048
     Dates: start: 200906, end: 2011
  32. XYREM [Suspect]
     Active Substance: SODIUM OXYBATE
     Dosage: 4.5 G, BID
     Route: 048
     Dates: start: 201605
  33. DEXEDRINE [Concomitant]
     Active Substance: DEXTROAMPHETAMINE SULFATE
     Indication: SOMNOLENCE
  34. BOTOX [Concomitant]
     Active Substance: ONABOTULINUMTOXINA

REACTIONS (2)
  - Blood pressure increased [Unknown]
  - Fluid retention [Unknown]

NARRATIVE: CASE EVENT DATE: 2016
